FAERS Safety Report 11135542 (Version 1)
Quarter: 2015Q2

REPORT INFORMATION
  Report Type: Spontaneous
  Country: US (occurrence: None)
  Receive Date: 20150522
  Receipt Date: 20150522
  Transmission Date: 20150821
  Serious: Yes (Death, Life-Threatening, Hospitalization)
  Sender: FDA-Public Use
  Company Number: None

PATIENT
  Age: 77 Year
  Sex: Female
  Weight: 52.2 kg

DRUGS (13)
  1. METOPROLOL [Concomitant]
     Active Substance: METOPROLOL
  2. OXYCODONE SR (OXYCONTIN) [Concomitant]
  3. AMIODARONE [Concomitant]
     Active Substance: AMIODARONE
  4. DABIGATRAN [Concomitant]
     Active Substance: DABIGATRAN
  5. DESMOPRESSIN [Concomitant]
     Active Substance: DESMOPRESSIN
  6. LISINOPRIL. [Concomitant]
     Active Substance: LISINOPRIL
  7. PRADAXA [Suspect]
     Active Substance: DABIGATRAN ETEXILATE MESYLATE
     Indication: ATRIAL FIBRILLATION
     Dosage: 150 MG (2 CAPSULES) QD ORAL
     Route: 048
     Dates: end: 20150515
  8. DIGOXIN. [Concomitant]
     Active Substance: DIGOXIN
  9. IBUPROFEN. [Concomitant]
     Active Substance: IBUPROFEN
  10. OMEPRAZOLE. [Concomitant]
     Active Substance: OMEPRAZOLE
  11. ATORVASTATIN [Concomitant]
     Active Substance: ATORVASTATIN
  12. FUROSEMIDE. [Concomitant]
     Active Substance: FUROSEMIDE
  13. ACETAMINOPHEN. [Concomitant]
     Active Substance: ACETAMINOPHEN

REACTIONS (16)
  - Vomiting [None]
  - Gastric occult blood positive [None]
  - Platelet count decreased [None]
  - Haematochezia [None]
  - International normalised ratio increased [None]
  - Cardio-respiratory arrest [None]
  - Escherichia sepsis [None]
  - Cardioactive drug level increased [None]
  - Occult blood positive [None]
  - Acute kidney injury [None]
  - Toxicity to various agents [None]
  - Gastrointestinal haemorrhage [None]
  - Hypoxia [None]
  - Acute respiratory distress syndrome [None]
  - Hypotension [None]
  - Pneumonia [None]

NARRATIVE: CASE EVENT DATE: 20150515
